FAERS Safety Report 19308921 (Version 2)
Quarter: 2021Q2

REPORT INFORMATION
  Report Type: Spontaneous
  Country: US (occurrence: US)
  Receive Date: 20210526
  Receipt Date: 20210624
  Transmission Date: 20210717
  Serious: No
  Sender: FDA-Public Use
  Company Number: US-ASTRAZENECA-2021A438917

PATIENT
  Age: 19937 Day
  Sex: Female
  Weight: 62.1 kg

DRUGS (1)
  1. BYDUREON BCISE [Suspect]
     Active Substance: EXENATIDE
     Indication: TYPE 2 DIABETES MELLITUS
     Route: 058
     Dates: start: 202104

REACTIONS (5)
  - Injection site pain [Unknown]
  - Device leakage [Unknown]
  - Wrong technique in device usage process [Unknown]
  - Injection site nodule [Unknown]
  - Injection site haemorrhage [Unknown]

NARRATIVE: CASE EVENT DATE: 20210513
